FAERS Safety Report 14598441 (Version 1)
Quarter: 2018Q1

REPORT INFORMATION
  Report Type: Spontaneous
  Country: US (occurrence: US)
  Receive Date: 20180305
  Receipt Date: 20180305
  Transmission Date: 20180509
  Serious: No
  Sender: FDA-Public Use
  Company Number: US-PFIZER INC-2018091530

PATIENT
  Age: 70 Year
  Sex: Female
  Weight: 86.18 kg

DRUGS (12)
  1. CALCIUM + D3 /00944201/ [Concomitant]
     Active Substance: CALCIUM CARBONATE\CHOLECALCIFEROL
     Dosage: 1 DF, 2X/DAY (CALCIUM 600MG/D3 400IU) ONE TWICE DAILY
  2. METAXALONE. [Suspect]
     Active Substance: METAXALONE
     Indication: BACK PAIN
     Dosage: 800 MG (800MG TABLETS, 3-4 TIMES A DAY AS NEEDED )
  3. ASPIRIN. [Concomitant]
     Active Substance: ASPIRIN
     Indication: CARDIAC DISORDER
     Dosage: 325MG ONCE DAILY
  4. METAXALONE. [Suspect]
     Active Substance: METAXALONE
     Dosage: UNK, AS NEEDED (EVERY ONCE IN A WHILE IF SHE NEEDED IT)
  5. LEVOTHYROXINE. [Concomitant]
     Active Substance: LEVOTHYROXINE
     Indication: THYROID DISORDER
     Dosage: 100MCG ONCE DAILY
  6. IRBESARTAN. [Concomitant]
     Active Substance: IRBESARTAN
     Indication: HYPERTENSION
     Dosage: 300MG ONCE DAILY
  7. IBUPROFEN. [Concomitant]
     Active Substance: IBUPROFEN
     Indication: PAIN
     Dosage: 800 MG, AS NEEDED
  8. VITAMIN D3 [Concomitant]
     Active Substance: CHOLECALCIFEROL
     Dosage: 2000IU SOFTGEL, TWO SOFTGETS ONCE DAILY
  9. RED YEAST RICE [Concomitant]
     Active Substance: DIETARY SUPPLEMENT
     Dosage: 600MG TABLET, 2 TABLETS WITH EACH MEAL
  10. CETIRIZINE [Concomitant]
     Active Substance: CETIRIZINE HYDROCHLORIDE
     Indication: HYPERSENSITIVITY
     Dosage: 10MG ONCE DAILY
  11. FLUTICASONE. [Concomitant]
     Active Substance: FLUTICASONE
     Indication: UPPER-AIRWAY COUGH SYNDROME
     Dosage: 50MCG NASAL SPRAY, 2 SPRAYS IN EACH NOSTRIL ONCE DAILY
     Route: 045
  12. MAGNESIUM [Concomitant]
     Active Substance: MAGNESIUM
     Dosage: 400MG ONCE DAILY

REACTIONS (3)
  - Drug ineffective for unapproved indication [Unknown]
  - Expired product administered [Unknown]
  - Product use issue [Unknown]
